FAERS Safety Report 26059981 (Version 2)
Quarter: 2025Q4

REPORT INFORMATION
  Report Type: Spontaneous
  Country: US (occurrence: US)
  Receive Date: 20251118
  Receipt Date: 20251202
  Transmission Date: 20260118
  Serious: No
  Sender: VERTEX
  Company Number: US-VERTEX PHARMACEUTICALS-2025-018994

PATIENT
  Age: 62 Year
  Sex: Female

DRUGS (1)
  1. JOURNAVX [Suspect]
     Active Substance: SUZETRIGINE
     Indication: Pain
     Dosage: UNK

REACTIONS (1)
  - Nausea [Recovering/Resolving]
